FAERS Safety Report 10494363 (Version 4)
Quarter: 2016Q1

REPORT INFORMATION
  Report Type: Spontaneous
  Country: US (occurrence: None)
  Receive Date: 20140815
  Receipt Date: 20160129
  Transmission Date: 20160525
  Serious: Yes (Life-Threatening, Hospitalization, Congenital Anomaly, Other)
  Sender: FDA-Public Use
  Company Number: ADR-2014-00067

PATIENT
  Age: 85 Year
  Sex: Male

DRUGS (2)
  1. LIORESAL [Suspect]
     Active Substance: BACLOFEN
     Indication: MUSCLE SPASTICITY
     Dosage: 333 MCG/DAY
  2. FLOMAX [Suspect]
     Active Substance: TAMSULOSIN HYDROCHLORIDE
     Dosage: 0.4 G, QHS, ORAL

REACTIONS (30)
  - Underdose [None]
  - Personality change [None]
  - Performance status decreased [None]
  - Amnesia [None]
  - Quality of life decreased [None]
  - Facial paralysis [None]
  - Muscular weakness [None]
  - No therapeutic response [None]
  - Anxiety [None]
  - Drooling [None]
  - Asthenia [None]
  - Mental status changes [None]
  - Deformity [None]
  - Pain [None]
  - Memory impairment [None]
  - Lethargy [None]
  - Device malfunction [None]
  - Vision blurred [None]
  - Dyspnoea [None]
  - Gait disturbance [None]
  - Emotional distress [None]
  - Altered state of consciousness [None]
  - Seizure [None]
  - Sedation [None]
  - Confusional state [None]
  - Mental status changes postoperative [None]
  - Aggression [None]
  - Overdose [None]
  - Social avoidant behaviour [None]
  - Cardiac arrest [None]
